FAERS Safety Report 7183238-2 (Version None)
Quarter: 2010Q4

REPORT INFORMATION
  Report Type: 
  Country: None (occurrence: None)
  Receive Date: 20101222
  Receipt Date: 20100330
  Transmission Date: 20110411
  Serious: No
  Sender: FDA-Public Use
  Company Number: A0852664A

PATIENT
  Age: 49 Year
  Sex: Female

DRUGS (2)
  1. FLONASE [Suspect]
     Indication: SEASONAL ALLERGY
     Dosage: 2SPR PER DAY
     Route: 045
     Dates: start: 20080101
  2. OTHER MEDICATIONS [Concomitant]

REACTIONS (3)
  - EYE PRURITUS [None]
  - HEADACHE [None]
  - RHINORRHOEA [None]
